FAERS Safety Report 19461593 (Version 3)
Quarter: 2021Q3

REPORT INFORMATION
  Report Type: Spontaneous
  Country: US (occurrence: US)
  Receive Date: 20210625
  Receipt Date: 20210712
  Transmission Date: 20211014
  Serious: Yes (Hospitalization, Other)
  Sender: FDA-Public Use
  Company Number: US-ROCHE-2854655

PATIENT
  Sex: Male

DRUGS (1)
  1. ACTIVASE [Suspect]
     Active Substance: ALTEPLASE
     Indication: ISCHAEMIC STROKE
     Route: 042
     Dates: start: 20210608, end: 20210608

REACTIONS (5)
  - Aspiration [Unknown]
  - Headache [Unknown]
  - Blood glucose increased [Unknown]
  - Vomiting [Unknown]
  - Haemorrhage [Unknown]
